FAERS Safety Report 7410745-7 (Version None)
Quarter: 2011Q2

REPORT INFORMATION
  Report Type: 
  Country: None (occurrence: None)
  Receive Date: 20110413
  Receipt Date: 20110406
  Transmission Date: 20111010
  Serious: No
  Sender: FDA-Public Use
  Company Number: US-ROXANE LABORATORIES, INC.-2011-RO-00463RO

PATIENT
  Sex: Male

DRUGS (5)
  1. WARFARIN [Concomitant]
     Dosage: 2.5 MG
  2. TAMSULOSIN [Concomitant]
  3. CARVEDILOL [Concomitant]
     Dosage: 50 MG
  4. RAMIPRIL [Suspect]
     Indication: HYPERTENSION
     Dosage: 10 MG
     Route: 048
     Dates: start: 20110325, end: 20110329
  5. ASPIRIN [Concomitant]

REACTIONS (1)
  - BLOOD PRESSURE INCREASED [None]
